FAERS Safety Report 4624189-4 (Version None)
Quarter: 2005Q1

REPORT INFORMATION
  Report Type: 
  Country: None (occurrence: None)
  Receive Date: 20050331
  Receipt Date: 20050322
  Transmission Date: 20050727
  Serious: Yes (Other)
  Sender: FDA-Public Use
  Company Number: PHNU2005DE01445

PATIENT
  Sex: Male

DRUGS (2)
  1. ANDROCUR [Concomitant]
     Route: 048
  2. ZOMETA [Suspect]
     Indication: METASTASES TO BONE
     Dosage: 4 MG, ONCE/SINGLE
     Dates: start: 20050201, end: 20050201

REACTIONS (4)
  - CEREBROVASCULAR ACCIDENT [None]
  - CHILLS [None]
  - PYREXIA [None]
  - SPEECH DISORDER [None]
